FAERS Safety Report 9090513 (Version 2)
Quarter: 2013Q1

REPORT INFORMATION
  Report Type: Report from Study
  Country: JP (occurrence: JP)
  Receive Date: 20130131
  Receipt Date: 20130312
  Transmission Date: 20140127
  Serious: Yes (Death, Hospitalization)
  Sender: FDA-Public Use
  Company Number: JP-AMGEN-JPNCT2013006809

PATIENT
  Age: 79 Year
  Sex: Female
  Weight: 37 kg

DRUGS (9)
  1. ROMIPLOSTIM - KHK [Suspect]
     Indication: IDIOPATHIC THROMBOCYTOPENIC PURPURA
     Dosage: 1 MUG/KG, QD
     Route: 058
     Dates: start: 20120302, end: 20120302
  2. ROMIPLOSTIM - KHK [Suspect]
     Dosage: 2 MUG/KG, QD
     Route: 058
     Dates: start: 20120309, end: 20120309
  3. ROMIPLOSTIM - KHK [Suspect]
     Dosage: 3 MUG/KG, QD
     Route: 058
     Dates: start: 20120316, end: 20120316
  4. ROMIPLOSTIM - KHK [Suspect]
     Dosage: 2 MUG/KG, QD
     Route: 058
     Dates: start: 20120322, end: 20120322
  5. ROMIPLOSTIM - KHK [Suspect]
     Dosage: 1 MUG/KG, QWK
     Route: 058
     Dates: start: 20120329, end: 20120405
  6. ROMIPLOSTIM - KHK [Suspect]
     Dosage: 2 MUG/KG, QWK
     Route: 058
     Dates: start: 20120412, end: 20120531
  7. ROMIPLOSTIM - KHK [Suspect]
     Dosage: 1 MUG/KG, QWK
     Route: 058
     Dates: start: 20120607, end: 20120621
  8. ROMIPLOSTIM - KHK [Suspect]
     Dosage: 2 MUG/KG, QD
     Route: 058
     Dates: start: 20120628, end: 20120628
  9. ROMIPLOSTIM - KHK [Suspect]
     Dosage: 3 MUG/KG, QD
     Route: 058
     Dates: start: 20120705, end: 20120705

REACTIONS (3)
  - Neutrophil percentage decreased [Recovered/Resolved]
  - White blood cell count decreased [Recovered/Resolved]
  - Renal failure [Fatal]
